FAERS Safety Report 21842227 (Version 1)
Quarter: 2023Q1

REPORT INFORMATION
  Report Type: Spontaneous
  Country: IT (occurrence: None)
  Receive Date: 20230110
  Receipt Date: 20230110
  Transmission Date: 20230418
  Serious: Yes (Other)
  Sender: FDA-Public Use
  Company Number: IT-ROCHE-3259233

PATIENT
  Age: 58 Year
  Sex: Female

DRUGS (1)
  1. RIVOTRIL [Suspect]
     Active Substance: CLONAZEPAM
     Indication: Product used for unknown indication
     Dosage: 4 DROP
     Route: 048
     Dates: start: 20220412, end: 20220412

REACTIONS (2)
  - Vertigo [Unknown]
  - Vision blurred [Unknown]

NARRATIVE: CASE EVENT DATE: 20220412
